FAERS Safety Report 7190126-4 (Version None)
Quarter: 2010Q4

REPORT INFORMATION
  Report Type: 
  Country: None (occurrence: None)
  Receive Date: 20101223
  Receipt Date: 20101214
  Transmission Date: 20110411
  Serious: Yes (Hospitalization)
  Sender: FDA-Public Use
  Company Number: CA-JNJFOC-20101205668

PATIENT
  Sex: Female

DRUGS (3)
  1. REMICADE [Suspect]
     Indication: CROHN'S DISEASE
     Route: 042
  2. REMICADE [Suspect]
     Dosage: LAST INFLIXIMAB INFUSION 29-OCT-2010
     Route: 042
  3. IMURAN [Concomitant]

REACTIONS (2)
  - OBSTRUCTION [None]
  - UNEVALUABLE EVENT [None]
